FAERS Safety Report 4304509-0 (Version None)
Quarter: 2004Q1

REPORT INFORMATION
  Report Type: 
  Country: None (occurrence: None)
  Receive Date: 20040223
  Receipt Date: 20040223
  Transmission Date: 20041129
  Serious: Yes (Disabling)
  Sender: FDA-Public Use
  Company Number: None

PATIENT
  Age: 61 Year
  Sex: Male
  Weight: 56.6996 kg

DRUGS (1)
  1. ZICAM COLD REMEDY ORAL MIST MATRIXX INITIATIVES, INC. [Suspect]
     Indication: COUGH
     Dosage: 3 OR 4 OROPHARINGEAL
     Route: 049
     Dates: start: 20040202, end: 20040203

REACTIONS (2)
  - ANOSMIA [None]
  - HYPOGEUSIA [None]
